FAERS Safety Report 12641527 (Version 1)
Quarter: 2016Q3

REPORT INFORMATION
  Report Type: Spontaneous
  Country: US (occurrence: US)
  Receive Date: 20160810
  Receipt Date: 20160810
  Transmission Date: 20161109
  Serious: Yes (Life-Threatening, Hospitalization, Other)
  Sender: FDA-Public Use
  Company Number: US-ASTRAZENECA-2016SE84671

PATIENT
  Age: 56 Year
  Sex: Female
  Weight: 77.1 kg

DRUGS (26)
  1. LYNPARZA [Suspect]
     Active Substance: OLAPARIB
     Indication: OVARIAN CANCER
     Dosage: 200.0MG UNKNOWN
     Route: 048
     Dates: start: 201511, end: 20160314
  2. FUROSEMIDE. [Concomitant]
     Active Substance: FUROSEMIDE
     Indication: FLUID RETENTION
     Route: 048
  3. MEXTAXALONE [Concomitant]
     Indication: MYALGIA
     Route: 048
     Dates: start: 2014
  4. PROAIR HFA 8.5 [Concomitant]
     Indication: INHALATION THERAPY
     Dosage: 90.0MG UNKNOWN
     Route: 055
     Dates: start: 2010
  5. NEXIUM [Suspect]
     Active Substance: ESOMEPRAZOLE MAGNESIUM
     Indication: GASTROOESOPHAGEAL REFLUX DISEASE
     Route: 048
     Dates: start: 2008
  6. FEMARA [Concomitant]
     Active Substance: LETROZOLE
     Indication: BREAST CANCER
     Route: 048
  7. LIPITOR [Concomitant]
     Active Substance: ATORVASTATIN CALCIUM
     Indication: BLOOD CHOLESTEROL INCREASED
     Route: 048
     Dates: start: 2008
  8. IPRATROPIUM ALBUTEROL SULFATE NEBULIZER [Concomitant]
     Indication: ASTHMA
     Route: 055
     Dates: start: 201603
  9. DILTIAZEM XL [Concomitant]
     Indication: HYPERTENSION
     Route: 048
  10. AMITIZA [Concomitant]
     Active Substance: LUBIPROSTONE
     Indication: IRRITABLE BOWEL SYNDROME
     Dosage: 24.0MG UNKNOWN
     Route: 048
     Dates: start: 2008
  11. TRAZODONE [Concomitant]
     Active Substance: TRAZODONE HYDROCHLORIDE
     Indication: FIBROMYALGIA
     Route: 048
     Dates: start: 2013
  12. FLUTICASONE [Concomitant]
     Active Substance: FLUTICASONE\FLUTICASONE PROPIONATE
     Dosage: DAILY
     Route: 045
     Dates: start: 2010
  13. TRAZODONE [Concomitant]
     Active Substance: TRAZODONE HYDROCHLORIDE
     Indication: DEPRESSION
     Route: 048
     Dates: start: 2013
  14. CLONAZEPAM. [Concomitant]
     Active Substance: CLONAZEPAM
     Indication: ANXIETY
     Route: 048
     Dates: start: 2003
  15. CLONAZEPAM. [Concomitant]
     Active Substance: CLONAZEPAM
     Indication: ANXIETY
     Route: 048
     Dates: start: 2003
  16. TEMAZEPAM. [Concomitant]
     Active Substance: TEMAZEPAM
     Indication: SLEEP DISORDER THERAPY
     Dosage: 15.0MG UNKNOWN
     Route: 048
  17. TOPROL XL [Suspect]
     Active Substance: METOPROLOL SUCCINATE
     Indication: HEART RATE IRREGULAR
     Dosage: 50.0MG UNKNOWN
     Route: 048
  18. FAMOTIDINE. [Concomitant]
     Active Substance: FAMOTIDINE
     Indication: GASTROOESOPHAGEAL REFLUX DISEASE
     Route: 048
     Dates: start: 2008
  19. ADVAIR DISKUS [Concomitant]
     Active Substance: FLUTICASONE PROPIONATE\SALMETEROL XINAFOATE
     Indication: ASTHMA
     Route: 055
     Dates: start: 2010
  20. DILTIAZEM XL [Concomitant]
     Indication: MITRAL VALVE PROLAPSE
     Route: 048
  21. CELECOXIB. [Concomitant]
     Active Substance: CELECOXIB
     Indication: OSTEOARTHRITIS
     Dosage: 100.0MG UNKNOWN
     Route: 048
     Dates: start: 2015
  22. MEXTAXALONE [Concomitant]
     Indication: MUSCLE RELAXANT THERAPY
     Route: 048
     Dates: start: 2014
  23. TOPROL XL [Suspect]
     Active Substance: METOPROLOL SUCCINATE
     Indication: HYPERTENSION
     Dosage: 50.0MG UNKNOWN
     Route: 048
  24. BUPROPION XL [Concomitant]
     Active Substance: BUPROPION
     Indication: DEPRESSION
     Route: 048
     Dates: start: 2003
  25. FUROSEMIDE. [Concomitant]
     Active Substance: FUROSEMIDE
     Indication: HYPERTENSION
     Route: 048
  26. SPIRIVA [Concomitant]
     Active Substance: TIOTROPIUM BROMIDE MONOHYDRATE
     Indication: ASTHMA
     Dosage: 1.25 UNKNOWN,DAILY
     Route: 055
     Dates: start: 201606

REACTIONS (46)
  - Osteoarthritis [Unknown]
  - Musculoskeletal stiffness [Unknown]
  - Lethargy [Unknown]
  - Cardiac stress test abnormal [Unknown]
  - Insomnia [Unknown]
  - Renal cyst [Unknown]
  - Hiatus hernia [Unknown]
  - Depression [Unknown]
  - Chills [Unknown]
  - Eating disorder [Unknown]
  - Malaise [Unknown]
  - Diaphragmatic paralysis [Unknown]
  - Breast cancer [Unknown]
  - Sternal fracture [Unknown]
  - Anaphylactic shock [Unknown]
  - Dyspnoea [Unknown]
  - Activities of daily living impaired [Unknown]
  - Pulmonary mass [Unknown]
  - Chest pain [Unknown]
  - Fibromyalgia [Unknown]
  - Anxiety [Unknown]
  - Cough [Unknown]
  - Tumour marker increased [Unknown]
  - Fatigue [Unknown]
  - Amnesia [Unknown]
  - Pneumonia [Unknown]
  - Cardiac arrest [Unknown]
  - Wheezing [Unknown]
  - Hypersomnia [Unknown]
  - Urticaria [Unknown]
  - Renal neoplasm [Unknown]
  - Metastases to lymph nodes [Unknown]
  - Bronchitis [Unknown]
  - Apparent death [Unknown]
  - BRCA2 gene mutation [Unknown]
  - Nausea [Unknown]
  - Asthenia [Unknown]
  - Off label use [Unknown]
  - Rib fracture [Unknown]
  - Asthma [Unknown]
  - Phrenic nerve paralysis [Unknown]
  - Ovarian cancer [Unknown]
  - Aspiration [Unknown]
  - Urticaria [Unknown]
  - Blood cholesterol increased [Unknown]
  - Gastrooesophageal reflux disease [Unknown]

NARRATIVE: CASE EVENT DATE: 2002
